FAERS Safety Report 24861270 (Version 1)
Quarter: 2025Q1

REPORT INFORMATION
  Report Type: Spontaneous
  Country: RS (occurrence: RS)
  Receive Date: 20250120
  Receipt Date: 20250120
  Transmission Date: 20250408
  Serious: Yes (Hospitalization, Congenital Anomaly)
  Sender: JOHNSON AND JOHNSON
  Company Number: RS-JNJFOC-20250115917

PATIENT
  Sex: Female
  Weight: 3.04 kg

DRUGS (2)
  1. STELARA [Suspect]
     Active Substance: USTEKINUMAB
     Indication: Psoriasis
     Route: 064
     Dates: start: 20201123, end: 20211007
  2. STELARA [Suspect]
     Active Substance: USTEKINUMAB
     Route: 064
     Dates: start: 20201123, end: 20211007

REACTIONS (3)
  - Respiratory distress [Unknown]
  - Microtia [Unknown]
  - Foetal exposure during pregnancy [Recovered/Resolved]

NARRATIVE: CASE EVENT DATE: 20210101
